FAERS Safety Report 18301565 (Version 1)
Quarter: 2020Q3

REPORT INFORMATION
  Report Type: Spontaneous
  Country: CA (occurrence: CA)
  Receive Date: 20200923
  Receipt Date: 20200923
  Transmission Date: 20201103
  Serious: No
  Sender: FDA-Public Use
  Company Number: CA-RECKITT BENCKISER HEALTHCARE INT LIMITED-RB-87728-2020

PATIENT
  Age: 78 Year
  Sex: Female

DRUGS (1)
  1. MUCINEX MAXIMUM STRENGTH [Suspect]
     Active Substance: GUAIFENESIN
     Indication: UPPER-AIRWAY COUGH SYNDROME
     Dosage: 600 MILLIGRAM, SINGLE
     Route: 065
     Dates: start: 20200521

REACTIONS (1)
  - Visual impairment [Recovered/Resolved]

NARRATIVE: CASE EVENT DATE: 20200521
